FAERS Safety Report 15280150 (Version 2)
Quarter: 2018Q3

REPORT INFORMATION
  Report Type: Spontaneous
  Country: US (occurrence: US)
  Receive Date: 20180815
  Receipt Date: 20180817
  Transmission Date: 20181010
  Serious: No
  Sender: FDA-Public Use
  Company Number: US-SA-2018SA222208

PATIENT
  Age: 67 Year
  Sex: Male

DRUGS (1)
  1. GOLD BOND INTENSIVE HEALING ANTI ITCH SKIN PROTECTANT [Suspect]
     Active Substance: DIMETHICONE\PRAMOXINE HYDROCHLORIDE
     Indication: THERMAL BURN
     Dosage: UNK

REACTIONS (3)
  - Scar [Unknown]
  - Swelling [Unknown]
  - Drug ineffective [Unknown]
